FAERS Safety Report 4938254-5 (Version None)
Quarter: 2006Q1

REPORT INFORMATION
  Report Type: 
  Country: None (occurrence: None)
  Receive Date: 20060309
  Receipt Date: 20060225
  Transmission Date: 20060701
  Serious: Yes (Hospitalization)
  Sender: FDA-Public Use
  Company Number: BE-ROCHE-437925

PATIENT
  Age: 38 Year
  Sex: Male
  Weight: 55 kg

DRUGS (7)
  1. FUZEON [Suspect]
     Route: 058
     Dates: start: 20040209
  2. ZIDOVUDINE [Concomitant]
  3. LAMIVUDINE [Concomitant]
  4. TENOFOVIR [Concomitant]
  5. RITONAVIR [Concomitant]
  6. TIPRANAVIR [Concomitant]
  7. UNSPECIFIED DRUG [Concomitant]
     Dosage: REPORTED AS ^SOMATULINE^.

REACTIONS (3)
  - COLITIS [None]
  - EPIDIDYMITIS [None]
  - ORCHITIS [None]
